FAERS Safety Report 25818497 (Version 3)
Quarter: 2025Q4

REPORT INFORMATION
  Report Type: Spontaneous
  Country: GB (occurrence: GB)
  Receive Date: 20250918
  Receipt Date: 20251003
  Transmission Date: 20260117
  Serious: Yes (Other)
  Sender: PFIZER
  Company Number: GB-MLMSERVICE-20250908-PI641072-00218-1

PATIENT
  Age: 55 Year
  Sex: Female
  Weight: 49 kg

DRUGS (2)
  1. METHOTREXATE SODIUM [Suspect]
     Active Substance: METHOTREXATE SODIUM
     Indication: Psoriatic arthropathy
     Dosage: CONTROLLING ARTHRITIS FOR THE PAST 6 YEARS
     Route: 058
  2. METHOTREXATE SODIUM [Suspect]
     Active Substance: METHOTREXATE SODIUM
     Indication: Arthritis

REACTIONS (6)
  - Tibia fracture [Unknown]
  - Foot fracture [Unknown]
  - Impaired healing [Unknown]
  - Bone disorder [Unknown]
  - Off label use [Unknown]
  - Off label use [Unknown]
